FAERS Safety Report 24115805 (Version 2)
Quarter: 2024Q3

REPORT INFORMATION
  Report Type: Spontaneous
  Country: IT (occurrence: IT)
  Receive Date: 20240721
  Receipt Date: 20240724
  Transmission Date: 20241016
  Serious: Yes (Other)
  Sender: INTERCHEM
  Company Number: IT-MINISAL02-993296

PATIENT
  Age: 8 Day
  Sex: Female

DRUGS (1)
  1. DEXMEDETOMIDINE HYDROCHLORIDE [Suspect]
     Active Substance: DEXMEDETOMIDINE HYDROCHLORIDE
     Indication: Product used for unknown indication
     Dosage: 2 MILLILITRE PER KILOGRAM
     Route: 065
     Dates: start: 20240306, end: 20240306

REACTIONS (9)
  - Electroencephalogram abnormal [Recovered/Resolved]
  - Blood lactic acid increased [Recovered/Resolved]
  - Drug screen positive [Unknown]
  - Apnoea [Recovered/Resolved]
  - Dyspnoea [Recovered/Resolved]
  - Hyperglycaemia [Recovered/Resolved]
  - Wrong product administered [Unknown]
  - Product administered to patient of inappropriate age [Unknown]
  - Bradycardia [Recovered/Resolved]

NARRATIVE: CASE EVENT DATE: 20240306
